FAERS Safety Report 5295380-1 (Version None)
Quarter: 2007Q2

REPORT INFORMATION
  Report Type: 
  Country: None (occurrence: None)
  Receive Date: 20070405
  Receipt Date: 20070327
  Transmission Date: 20071010
  Serious: Yes (Hospitalization, Other)
  Sender: FDA-Public Use
  Company Number: 2007SP005808

PATIENT
  Age: 48 Year
  Sex: Female

DRUGS (2)
  1. PEG-INTRON [Suspect]
     Indication: HEPATITIS C
     Dosage: ONCE; SC
     Route: 058
     Dates: start: 20070209
  2. RIBAVIRIN [Suspect]
     Indication: HEPATITIS C
     Dosage: PO
     Route: 048

REACTIONS (5)
  - AMMONIA INCREASED [None]
  - CHEST PAIN [None]
  - CONFUSIONAL STATE [None]
  - HAEMOPTYSIS [None]
  - VARICES OESOPHAGEAL [None]
